FAERS Safety Report 5738479-5 (Version None)
Quarter: 2008Q2

REPORT INFORMATION
  Report Type: 
  Country: None (occurrence: None)
  Receive Date: 20080513
  Receipt Date: 20080429
  Transmission Date: 20081010
  Serious: Yes (Other)
  Sender: FDA-Public Use
  Company Number: TPA2008A00606

PATIENT
  Age: 66 Year
  Sex: Female

DRUGS (2)
  1. ROZEREM [Suspect]
     Indication: INSOMNIA
     Dosage: PER ORAL
     Route: 048
     Dates: start: 20060201, end: 20080403
  2. ANTIHYPERTENSIVE (ANTIHYPERTENSIVES) [Concomitant]

REACTIONS (3)
  - EXPIRED DRUG ADMINISTERED [None]
  - LOSS OF CONSCIOUSNESS [None]
  - SYNCOPE [None]
